FAERS Safety Report 24295984 (Version 1)
Quarter: 2024Q3

REPORT INFORMATION
  Report Type: Report from Study
  Country: CO (occurrence: CO)
  Receive Date: 20240909
  Receipt Date: 20240909
  Transmission Date: 20241017
  Serious: Yes (Other)
  Sender: ABBVIE
  Company Number: CO-ABBVIE-5906920

PATIENT
  Age: 82 Year
  Sex: Male
  Weight: 80 kg

DRUGS (1)
  1. SKYRIZI [Suspect]
     Active Substance: RISANKIZUMAB-RZAA
     Indication: Psoriasis
     Route: 058
     Dates: start: 20240524, end: 20240619

REACTIONS (12)
  - Suicidal ideation [Recovering/Resolving]
  - Wound haemorrhage [Recovering/Resolving]
  - Haemorrhage [Recovering/Resolving]
  - Blepharitis [Recovering/Resolving]
  - Insomnia [Recovering/Resolving]
  - Psoriasis [Unknown]
  - Dermatitis [Recovering/Resolving]
  - Acne [Recovered/Resolved]
  - Skin exfoliation [Recovering/Resolving]
  - Inflammation [Recovering/Resolving]
  - Pruritus [Not Recovered/Not Resolved]
  - Abnormal behaviour [Recovering/Resolving]

NARRATIVE: CASE EVENT DATE: 20240501
